FAERS Safety Report 4428035-3 (Version None)
Quarter: 2004Q3

REPORT INFORMATION
  Report Type: 
  Country: None (occurrence: None)
  Receive Date: 20040813
  Receipt Date: 20040803
  Transmission Date: 20050211
  Serious: Yes (Hospitalization)
  Sender: FDA-Public Use
  Company Number: 001-0981-M0000552

PATIENT
  Age: 56 Year
  Sex: Female
  Weight: 103.8737 kg

DRUGS (13)
  1. ATORVASTATIN (ATORVASTATIN) [Suspect]
     Indication: CORONARY ARTERY DISEASE
     Dosage: 10 MG (DAILY) , ORAL : 10 OR 80MG (DAILY), ORAL
     Route: 048
     Dates: start: 19981124, end: 19990118
  2. ATORVASTATIN (ATORVASTATIN) [Suspect]
     Indication: CORONARY ARTERY DISEASE
     Dosage: 10 MG (DAILY) , ORAL : 10 OR 80MG (DAILY), ORAL
     Route: 048
     Dates: start: 19990119, end: 19990722
  3. METOPROLOL [Concomitant]
  4. ESTROGENS [Concomitant]
  5. ASPIRIN [Concomitant]
  6. IPRATROPIUM BROMIDE [Concomitant]
  7. NITROGLYCERIN [Concomitant]
  8. ALBUTEROL SULFATE [Concomitant]
  9. TORSEMIDE [Concomitant]
  10. CELECOXIB [Concomitant]
  11. LOSARTAN POTASSIUM [Concomitant]
  12. ATORVASTATIN [Concomitant]
  13. LEVOTHYROXINE SODIUM [Concomitant]

REACTIONS (2)
  - DEEP VEIN THROMBOSIS [None]
  - DISEASE RECURRENCE [None]
